FAERS Safety Report 18651716 (Version 1)
Quarter: 2020Q4

REPORT INFORMATION
  Report Type: Spontaneous
  Country: DK (occurrence: DK)
  Receive Date: 20201223
  Receipt Date: 20201223
  Transmission Date: 20210114
  Serious: Yes (Death, Congenital Anomaly, Other)
  Sender: FDA-Public Use
  Company Number: DK-MICRO LABS LIMITED-ML2020-03791

PATIENT

DRUGS (14)
  1. METAMIZOLE [Suspect]
     Active Substance: METAMIZOLE
     Route: 064
  2. RAMIPRIL. [Suspect]
     Active Substance: RAMIPRIL
     Route: 064
  3. SALBUTAMOL [Suspect]
     Active Substance: ALBUTEROL
     Route: 064
  4. SIMVASTATIN. [Suspect]
     Active Substance: SIMVASTATIN
     Route: 064
  5. RIVAROXABAN [Suspect]
     Active Substance: RIVAROXABAN
     Route: 064
  6. TACROLIMUS. [Suspect]
     Active Substance: TACROLIMUS
     Route: 064
  7. ALISKIREN [Suspect]
     Active Substance: ALISKIREN
     Route: 064
  8. EZETIMIBE. [Suspect]
     Active Substance: EZETIMIBE
     Route: 064
  9. DALTEPARIN [Suspect]
     Active Substance: DALTEPARIN
     Route: 064
  10. ACETYLSALICYLIC ACID [Suspect]
     Active Substance: ASPIRIN
     Route: 064
  11. PANTOPRAZOLE [Suspect]
     Active Substance: PANTOPRAZOLE
     Route: 064
  12. PREDNISOLONE. [Suspect]
     Active Substance: PREDNISOLONE
     Route: 064
  13. TORSEMIDE. [Suspect]
     Active Substance: TORSEMIDE
     Route: 064
  14. HYDROXYCHLOROQUINE [Suspect]
     Active Substance: HYDROXYCHLOROQUINE
     Route: 064

REACTIONS (4)
  - Foetal exposure during pregnancy [Fatal]
  - Congenital cardiovascular anomaly [Fatal]
  - Heart disease congenital [Fatal]
  - Cardiac septal defect [Fatal]
